FAERS Safety Report 4345692-0 (Version None)
Quarter: 2004Q2

REPORT INFORMATION
  Report Type: 
  Country: None (occurrence: None)
  Receive Date: 20040421
  Receipt Date: 20040407
  Transmission Date: 20050107
  Serious: Yes (Life-Threatening)
  Sender: FDA-Public Use
  Company Number: 2004-DE-01968GD

PATIENT
  Age: 65 Year
  Sex: Female

DRUGS (7)
  1. CLONIDINE [Suspect]
     Indication: HYPERTENSION
  2. LEVOFLOXACIN [Suspect]
     Indication: URINARY TRACT INFECTION
     Dosage: 25 MG, (ONCE), IV
     Route: 042
  3. POTASSIUM CHLORIDE [Suspect]
     Indication: HYPOKALAEMIA
  4. HYDROXYZINE [Suspect]
     Dosage: 400 MG (BID), ORAL
     Route: 048
  5. HYDROXYCHLOROQUINE SULFATE [Concomitant]
     Dosage: 400 MG (BID), PO
     Route: 048
  6. METOPROLOL (METOPROLOL) [Concomitant]
  7. RANITIDINE [Concomitant]

REACTIONS (20)
  - ASTHENIA [None]
  - BLOOD PRESSURE INCREASED [None]
  - BODY TEMPERATURE DECREASED [None]
  - CARDIAC ARREST [None]
  - COMA [None]
  - DIARRHOEA [None]
  - DRUG LEVEL INCREASED [None]
  - ELECTROCARDIOGRAM QT CORRECTED INTERVAL PROLONGED [None]
  - HEART RATE INCREASED [None]
  - HYPERTENSIVE CRISIS [None]
  - HYPOKALAEMIA [None]
  - HYPOMAGNESAEMIA [None]
  - NAUSEA [None]
  - OLIGURIA [None]
  - OSTEOMYELITIS [None]
  - RENAL FAILURE ACUTE [None]
  - TORSADE DE POINTES [None]
  - URINARY TRACT INFECTION [None]
  - VENTRICULAR FIBRILLATION [None]
  - VOMITING [None]
